FAERS Safety Report 12754562 (Version 1)
Quarter: 2016Q3

REPORT INFORMATION
  Report Type: Spontaneous
  Country: US (occurrence: US)
  Receive Date: 20160915
  Receipt Date: 20160915
  Transmission Date: 20161109
  Serious: No
  Sender: FDA-Public Use
  Company Number: US-ASTELLAS-2016US021608

PATIENT
  Age: 83 Year
  Sex: Male

DRUGS (2)
  1. XTANDI [Suspect]
     Active Substance: ENZALUTAMIDE
     Indication: PROSTATE CANCER
     Route: 048
     Dates: start: 20160509, end: 20160603
  2. XTANDI [Suspect]
     Active Substance: ENZALUTAMIDE
     Indication: METASTASES TO BONE

REACTIONS (6)
  - Dizziness [Unknown]
  - Nausea [Unknown]
  - Adverse event [Unknown]
  - Adverse event [Recovered/Resolved]
  - Vertigo [Unknown]
  - Hot flush [Unknown]

NARRATIVE: CASE EVENT DATE: 201605
